FAERS Safety Report 9404830 (Version 2)
Quarter: 2013Q4

REPORT INFORMATION
  Report Type: Spontaneous
  Country: GB (occurrence: GB)
  Receive Date: 20130717
  Receipt Date: 20131030
  Transmission Date: 20140711
  Serious: Yes (Other)
  Sender: FDA-Public Use
  Company Number: GB-BAYER-2013-083594

PATIENT
  Age: 90 Year
  Sex: Female

DRUGS (5)
  1. CIPROXIN SOLUTION FOR INFUSION [Suspect]
     Indication: NOSOCOMIAL INFECTION
     Dosage: 400 MG, BID
     Route: 042
     Dates: start: 20110509, end: 20110511
  2. CIPROXIN [Suspect]
     Indication: NOSOCOMIAL INFECTION
     Dosage: 500 MG, BID
     Route: 048
     Dates: start: 20110512, end: 20110513
  3. CIPROXIN [Suspect]
     Indication: NOSOCOMIAL INFECTION
     Dosage: 500 MG, TID
     Route: 048
     Dates: start: 20110505, end: 20110508
  4. CO-AMOXICLAV [Suspect]
     Indication: NOSOCOMIAL INFECTION
     Dosage: 1.2 G, TID
     Route: 042
     Dates: start: 20110504, end: 20110504
  5. OMEPRAZOLE [Concomitant]
     Dosage: 20 MG, QD

REACTIONS (6)
  - Clostridium difficile infection [Recovering/Resolving]
  - Abdominal distension [Recovering/Resolving]
  - Pyrexia [Recovering/Resolving]
  - Malaise [Recovering/Resolving]
  - Vomiting [Recovering/Resolving]
  - Gastroenteritis norovirus [Unknown]
